FAERS Safety Report 17785689 (Version 2)
Quarter: 2020Q2

REPORT INFORMATION
  Report Type: Report from Study
  Country: None (occurrence: CA)
  Receive Date: 20200513
  Receipt Date: 20200527
  Transmission Date: 20200714
  Serious: Yes (Hospitalization, Other)
  Sender: FDA-Public Use
  Company Number: CA-ABBVIE-20K-028-3399573-00

PATIENT
  Age: 63 Year
  Sex: Female

DRUGS (3)
  1. DEFLAZACORT [Concomitant]
     Active Substance: DEFLAZACORT
     Indication: PRODUCT USED FOR UNKNOWN INDICATION
     Dates: end: 202005
  2. RINVOQ [Suspect]
     Active Substance: UPADACITINIB
     Route: 048
     Dates: start: 202005
  3. RINVOQ [Suspect]
     Active Substance: UPADACITINIB
     Indication: RHEUMATOID ARTHRITIS
     Route: 048
     Dates: start: 20200205, end: 202004

REACTIONS (12)
  - Skin discolouration [Recovering/Resolving]
  - Upper limb fracture [Unknown]
  - Pain [Unknown]
  - Musculoskeletal pain [Unknown]
  - Trigger finger [Unknown]
  - Osteoporosis [Unknown]
  - Intervertebral disc degeneration [Unknown]
  - Bursitis [Recovering/Resolving]
  - Rash [Recovered/Resolved]
  - Haemorrhage [Unknown]
  - Carpal tunnel syndrome [Unknown]
  - Spinal pain [Unknown]

NARRATIVE: CASE EVENT DATE: 2020
